FAERS Safety Report 7347207-1 (Version None)
Quarter: 2011Q1

REPORT INFORMATION
  Report Type: 
  Country: None (occurrence: None)
  Receive Date: 20110311
  Receipt Date: 20110304
  Transmission Date: 20110831
  Serious: Yes (Other)
  Sender: FDA-Public Use
  Company Number: DK-PFIZER INC-2011040248

PATIENT
  Age: 20 Year
  Sex: Female

DRUGS (3)
  1. ZELDOX [Suspect]
     Indication: SCHIZOPHRENIA
     Dosage: 40 MG, 2X/DAY
     Dates: start: 20110201, end: 20110220
  2. ZELDOX [Suspect]
     Indication: BIPOLAR I DISORDER
  3. RISPERIDONE [Concomitant]
     Indication: SCHIZOPHRENIA

REACTIONS (6)
  - NAUSEA [None]
  - PHOTOPHOBIA [None]
  - SOMNOLENCE [None]
  - HALLUCINATION, VISUAL [None]
  - WITHDRAWAL SYNDROME [None]
  - MALAISE [None]
